FAERS Safety Report 18593797 (Version 4)
Quarter: 2021Q1

REPORT INFORMATION
  Report Type: Spontaneous
  Country: US (occurrence: US)
  Receive Date: 20201209
  Receipt Date: 20210106
  Transmission Date: 20210419
  Serious: Yes (Hospitalization)
  Sender: FDA-Public Use
  Company Number: US-BIOGEN-2020BI00954421

PATIENT
  Sex: Female

DRUGS (1)
  1. TYSABRI [Suspect]
     Active Substance: NATALIZUMAB
     Indication: MULTIPLE SCLEROSIS
     Route: 065
     Dates: start: 20160523

REACTIONS (6)
  - Pain [Unknown]
  - Anaemia [Unknown]
  - Creatinine renal clearance decreased [Unknown]
  - Sensory loss [Recovered/Resolved]
  - Flushing [Unknown]
  - Renal failure [Unknown]
